FAERS Safety Report 9747739 (Version 2)
Quarter: 2013Q4

REPORT INFORMATION
  Report Type: Spontaneous
  Country: TR (occurrence: TR)
  Receive Date: 20131212
  Receipt Date: 20131212
  Transmission Date: 20140711
  Serious: Yes (Other)
  Sender: FDA-Public Use
  Company Number: TR-ACCORD-020726

PATIENT
  Age: 62 Year
  Sex: Female

DRUGS (2)
  1. MITOMYCIN [Suspect]
     Indication: BREAST CANCER METASTATIC
     Dosage: SIX CURES
  2. NAVELBINE [Concomitant]
     Indication: BREAST CANCER METASTATIC

REACTIONS (1)
  - Guttate psoriasis [Recovering/Resolving]
